FAERS Safety Report 6565532-9 (Version None)
Quarter: 2010Q1

REPORT INFORMATION
  Report Type: 
  Country: None (occurrence: None)
  Receive Date: 20100201
  Receipt Date: 20100127
  Transmission Date: 20100710
  Serious: Yes (Life-Threatening)
  Sender: FDA-Public Use
  Company Number: JP-GENENTECH-292029

PATIENT
  Age: 64 Year
  Sex: Male

DRUGS (3)
  1. ACTIVASE [Suspect]
     Indication: CEREBRAL ARTERY EMBOLISM
     Dosage: 24.4 ML, QD
     Dates: start: 20090923, end: 20090923
  2. RADICUT [Concomitant]
     Indication: DRUG USE FOR UNKNOWN INDICATION
     Dosage: 30 MG, BID
     Route: 041
     Dates: start: 20090923, end: 20090925
  3. OMEPRAL [Concomitant]
     Indication: DRUG USE FOR UNKNOWN INDICATION
     Dosage: 20 MG, BID
     Route: 048
     Dates: start: 20090923, end: 20090924

REACTIONS (1)
  - ACUTE MYOCARDIAL INFARCTION [None]
